FAERS Safety Report 9118724 (Version 1)
Quarter: 2013Q1

REPORT INFORMATION
  Report Type: Spontaneous
  Country: CM (occurrence: CM)
  Receive Date: 20130226
  Receipt Date: 20130226
  Transmission Date: 20140127
  Serious: Yes (Hospitalization, Disabling)
  Sender: FDA-Public Use
  Company Number: CM-009507513-1302CMR006688

PATIENT
  Age: 19 Year
  Sex: Male
  Weight: 59 kg

DRUGS (1)
  1. MECTIZAN [Suspect]
     Indication: FILARIASIS
     Dosage: 4 DF, ONCE
     Route: 048
     Dates: start: 20121118, end: 20121118

REACTIONS (4)
  - Abasia [Recovering/Resolving]
  - Vision blurred [Recovering/Resolving]
  - Myalgia [Recovering/Resolving]
  - Asthenia [Recovering/Resolving]
